FAERS Safety Report 23537855 (Version 3)
Quarter: 2024Q4

REPORT INFORMATION
  Report Type: Spontaneous
  Country: ZA (occurrence: ZA)
  Receive Date: 20240219
  Receipt Date: 20241128
  Transmission Date: 20250115
  Serious: Yes (Other)
  Sender: CELLTRION
  Company Number: ZA-CELLTRION INC.-2023ZA012049

PATIENT

DRUGS (8)
  1. INFLIXIMAB [Suspect]
     Active Substance: INFLIXIMAB
     Indication: Colitis ulcerative
     Dosage: 500 MG, INFUSION EVERY 7 WEEKS
     Route: 042
     Dates: start: 20220420
  2. INFLIXIMAB [Suspect]
     Active Substance: INFLIXIMAB
     Indication: Colitis ulcerative
     Dosage: 500 MG, INFUSION EVERY 7 WEEKS
     Route: 042
     Dates: start: 20240115
  3. INFLIXIMAB [Suspect]
     Active Substance: INFLIXIMAB
     Dosage: 500 MG, INFUSION EVERY 6 WEEKS
     Route: 042
  4. INFLIXIMAB [Suspect]
     Active Substance: INFLIXIMAB
     Dosage: 10MG/KG= 900 MG, INFUSION EVERY 6 WEEKS
     Route: 042
  5. AZATHIOPRINE [Concomitant]
     Active Substance: AZATHIOPRINE
     Dosage: 200 MG
     Dates: start: 2014
  6. MESALAMINE [Concomitant]
     Active Substance: MESALAMINE
     Dosage: 4.6 G
     Dates: start: 2012
  7. ASACOL [Concomitant]
     Active Substance: MESALAMINE
     Dosage: 2.4 G, DAILY
  8. AZASAN [Concomitant]
     Active Substance: AZATHIOPRINE
     Dosage: 150 MG, DAILY

REACTIONS (7)
  - Colitis ulcerative [Recovered/Resolved]
  - Drug level decreased [Unknown]
  - Drug specific antibody absent [Unknown]
  - Therapeutic response shortened [Unknown]
  - Intentional product use issue [Unknown]
  - Overdose [Unknown]
  - Intentional product use issue [Unknown]

NARRATIVE: CASE EVENT DATE: 20230606
